FAERS Safety Report 8817839 (Version 1)
Quarter: 2012Q4

REPORT INFORMATION
  Report Type: 
  Country: US (occurrence: US)
  Receive Date: 20121004
  Receipt Date: 20121004
  Transmission Date: 20130627
  Serious: Yes (Hospitalization)
  Sender: FDA-Public Use
  Company Number: US-ROCHE-1120236

PATIENT
  Sex: Female
  Weight: 89.89 kg

DRUGS (14)
  1. XOLAIR [Suspect]
     Indication: PRODUCT USED FOR UNKNOWN INDICATION
     Route: 058
  2. XOLAIR [Suspect]
     Dosage: Expiry date text-31/oct/2015
     Route: 058
  3. IPRATROPIUM [Concomitant]
     Route: 065
  4. PREDNISOLONE [Concomitant]
     Route: 065
  5. SPIRIVA [Concomitant]
     Dosage: 1 dose inh qday
     Route: 065
  6. DIOVAN [Concomitant]
     Route: 065
  7. DOXYCYCLINE HYCLATE [Concomitant]
     Route: 065
  8. NEXIUM [Concomitant]
     Route: 065
  9. SERTRALINE HCL [Concomitant]
     Route: 065
  10. THYROID [Concomitant]
     Route: 065
  11. TOVIAZ [Concomitant]
     Route: 065
  12. BI-EST [Concomitant]
     Route: 065
  13. GUAIFENESIN [Concomitant]
     Route: 065
  14. QVAR [Concomitant]
     Route: 065

REACTIONS (8)
  - Asthma [Unknown]
  - Drug ineffective [Unknown]
  - Peak expiratory flow rate abnormal [Unknown]
  - Cough [Unknown]
  - Rhinitis allergic [Unknown]
  - Chest discomfort [Unknown]
  - Wheezing [Unknown]
  - Headache [Unknown]
